FAERS Safety Report 15610801 (Version 2)
Quarter: 2018Q4

REPORT INFORMATION
  Report Type: Report from Study
  Country: US (occurrence: US)
  Receive Date: 20181113
  Receipt Date: 20181122
  Transmission Date: 20190205
  Serious: Yes (Hospitalization, Other)
  Sender: FDA-Public Use
  Company Number: US-ROCHE-2187627

PATIENT
  Age: 83 Year
  Sex: Male
  Weight: 63.56 kg

DRUGS (6)
  1. ESBRIET [Suspect]
     Active Substance: PIRFENIDONE
     Indication: IDIOPATHIC PULMONARY FIBROSIS
     Dosage: TOOK 1 PILL ONLY THIS DAY
     Route: 065
     Dates: start: 20180824, end: 20180824
  2. ESBRIET [Suspect]
     Active Substance: PIRFENIDONE
     Dosage: 2 TABLETS 3 TIMES DAILY;
     Route: 065
     Dates: start: 20180901, end: 20180910
  3. ESBRIET [Suspect]
     Active Substance: PIRFENIDONE
     Route: 065
  4. ESBRIET [Suspect]
     Active Substance: PIRFENIDONE
     Dosage: TOOK 1 PILL 3 TIMES A DAY
     Route: 065
     Dates: start: 20180825, end: 20180831
  5. ESBRIET [Suspect]
     Active Substance: PIRFENIDONE
     Dosage: TOOK 2 PILLS 3 TIMES A DAY
     Route: 065
     Dates: start: 20180901, end: 20180906
  6. ESBRIET [Suspect]
     Active Substance: PIRFENIDONE
     Dosage: TOOK 1 PILL 3 TIMES A DAY;
     Route: 065
     Dates: start: 20180907, end: 20180909

REACTIONS (11)
  - Oropharyngeal pain [Not Recovered/Not Resolved]
  - Ulcer haemorrhage [Unknown]
  - Haematemesis [Unknown]
  - Swelling [Not Recovered/Not Resolved]
  - Gastrooesophageal reflux disease [Unknown]
  - Abdominal pain upper [Unknown]
  - Gastrointestinal disorder [Unknown]
  - Dizziness [Unknown]
  - Vomiting [Unknown]
  - Gastrooesophageal reflux disease [Recovered/Resolved]
  - Ulcer haemorrhage [Not Recovered/Not Resolved]

NARRATIVE: CASE EVENT DATE: 201809
